FAERS Safety Report 11073748 (Version 1)
Quarter: 2015Q2

REPORT INFORMATION
  Report Type: Spontaneous
  Country: FR (occurrence: FR)
  Receive Date: 20150428
  Receipt Date: 20150428
  Transmission Date: 20150821
  Serious: Yes (Hospitalization)
  Sender: FDA-Public Use
  Company Number: PHHY2015FR050131

PATIENT
  Age: 7 Year
  Sex: Male
  Weight: 42 kg

DRUGS (7)
  1. MABTHERA [Suspect]
     Active Substance: RITUXIMAB
     Dosage: 1 DF, (ONE INJECTION)
     Route: 065
     Dates: start: 20111216, end: 20111216
  2. MABTHERA [Suspect]
     Active Substance: RITUXIMAB
     Dosage: 1 DF, (ONE INJECTION)
     Route: 065
     Dates: start: 20111220, end: 20111220
  3. MABTHERA [Suspect]
     Active Substance: RITUXIMAB
     Indication: NEPHROTIC SYNDROME
     Dosage: 1 DF, (ONE INJECTION)
     Route: 065
     Dates: start: 20111213, end: 20111213
  4. MABTHERA [Suspect]
     Active Substance: RITUXIMAB
     Dosage: 1 DF, 375 MG/M2 (ONE INJECTION EVERY TWO MONTHS))
     Route: 065
     Dates: start: 20120913, end: 201403
  5. NEORAL [Suspect]
     Active Substance: CYCLOSPORINE
     Indication: NEPHROTIC SYNDROME
     Dosage: UNK
     Route: 048
     Dates: start: 2008, end: 201211
  6. MABTHERA [Suspect]
     Active Substance: RITUXIMAB
     Dosage: 1 DF, (ONE INJECTION)
     Route: 065
     Dates: start: 20111229, end: 20111229
  7. MABTHERA [Suspect]
     Active Substance: RITUXIMAB
     Dosage: 1 DF, (ONE INJECTION)
     Route: 065
     Dates: start: 20120411, end: 20120411

REACTIONS (2)
  - Lung disorder [Recovered/Resolved]
  - Hypogammaglobulinaemia [Not Recovered/Not Resolved]

NARRATIVE: CASE EVENT DATE: 20120913
